FAERS Safety Report 17405333 (Version 2)
Quarter: 2020Q1

REPORT INFORMATION
  Report Type: Report from Study
  Country: None (occurrence: AU)
  Receive Date: 20200212
  Receipt Date: 20200221
  Transmission Date: 20200409
  Serious: Yes (Life-Threatening, Hospitalization, Other)
  Sender: FDA-Public Use
  Company Number: AU-ABBVIE-19K-008-3187426-00

PATIENT
  Age: 82 Year
  Sex: Female

DRUGS (8)
  1. DUODOPA [Suspect]
     Active Substance: CARBIDOPA\LEVODOPA
     Route: 050
     Dates: start: 20191128
  2. DUODOPA [Suspect]
     Active Substance: CARBIDOPA\LEVODOPA
     Route: 050
  3. SENNA [Concomitant]
     Active Substance: SENNA LEAF\SENNOSIDES\SENNOSIDES A AND B
     Indication: PRODUCT USED FOR UNKNOWN INDICATION
  4. EUTROXSIG [Concomitant]
     Active Substance: LEVOTHYROXINE SODIUM
     Indication: THYROID HORMONE REPLACEMENT THERAPY
     Dosage: 1 TABLET IN MORNING ON EMPTY STOMACH
  5. MAGMIN [Concomitant]
     Active Substance: MAGNESIUM ASPARTATE
     Indication: PRODUCT USED FOR UNKNOWN INDICATION
  6. DUODOPA [Suspect]
     Active Substance: CARBIDOPA\LEVODOPA
     Indication: PARKINSON^S DISEASE
     Route: 050
     Dates: start: 20191120, end: 201911
  7. APOMORPHINE [Concomitant]
     Active Substance: APOMORPHINE
     Indication: PARKINSON^S DISEASE
     Route: 058
     Dates: start: 20191130
  8. COLOXYL [Concomitant]
     Indication: PRODUCT USED FOR UNKNOWN INDICATION

REACTIONS (22)
  - Impaired healing [Unknown]
  - Device dislocation [Unknown]
  - General physical health deterioration [Unknown]
  - Pneumonia aspiration [Recovered/Resolved]
  - Intra-abdominal fluid collection [Recovered/Resolved]
  - Pneumonia aspiration [Unknown]
  - Urinary tract infection [Unknown]
  - Hypophagia [Unknown]
  - Physical deconditioning [Unknown]
  - Mobility decreased [Unknown]
  - Faecaloma [Unknown]
  - Diarrhoea [Unknown]
  - Anxiety [Unknown]
  - Peritonitis [Recovered/Resolved]
  - Feeding disorder [Recovered/Resolved]
  - Ascites [Unknown]
  - Malaise [Recovered/Resolved]
  - Hallucination [Unknown]
  - Sepsis [Recovered/Resolved]
  - Pneumonia [Recovered/Resolved]
  - Fistula [Unknown]
  - Dysphagia [Unknown]

NARRATIVE: CASE EVENT DATE: 2019
